FAERS Safety Report 10182585 (Version 1)
Quarter: 2014Q2

REPORT INFORMATION
  Report Type: Spontaneous
  Country: US (occurrence: None)
  Receive Date: 20140519
  Receipt Date: 20140519
  Transmission Date: 20141212
  Serious: No
  Sender: FDA-Public Use
  Company Number: None

PATIENT
  Age: 43 Year
  Sex: Male
  Weight: 60.78 kg

DRUGS (1)
  1. ACYCLOVIR [Suspect]
     Indication: HERPES VIRUS INFECTION
     Dosage: 50 CAPS?THREE TIMES DAILY?TAKEN BY MOUTH
     Route: 048
     Dates: start: 20070405, end: 20070405

REACTIONS (5)
  - Pruritus generalised [None]
  - Rash generalised [None]
  - Scar [None]
  - Hypersensitivity [None]
  - Drug interaction [None]
